FAERS Safety Report 9323033 (Version 4)
Quarter: 2013Q3

REPORT INFORMATION
  Report Type: Spontaneous
  Country: US (occurrence: US)
  Receive Date: 20130603
  Receipt Date: 20130905
  Transmission Date: 20140515
  Serious: Yes (Hospitalization, Other)
  Sender: FDA-Public Use
  Company Number: US-ROCHE-661428

PATIENT
  Age: 22 Year
  Sex: Female
  Weight: 65.83 kg

DRUGS (1)
  1. ACCUTANE [Suspect]
     Indication: ACNE
     Route: 065
     Dates: start: 199701, end: 199706

REACTIONS (7)
  - Colitis ulcerative [Unknown]
  - Anal fissure [Recovered/Resolved]
  - Inflammatory bowel disease [Unknown]
  - Depression [Unknown]
  - Enteritis [Unknown]
  - Rectal polyp [Unknown]
  - Arthritis enteropathic [Unknown]
